FAERS Safety Report 25174320 (Version 6)
Quarter: 2025Q2

REPORT INFORMATION
  Report Type: Spontaneous
  Country: GR (occurrence: GR)
  Receive Date: 20250408
  Receipt Date: 20250623
  Transmission Date: 20250717
  Serious: No
  Sender: PFIZER
  Company Number: GR-PFIZER INC-PV202500040585

PATIENT
  Age: 5 Year
  Sex: Male
  Weight: 16 kg

DRUGS (2)
  1. GENOTROPIN [Suspect]
     Active Substance: SOMATROPIN
     Indication: Growth hormone deficiency
     Dosage: 3.6 MG, WEEKLY
     Route: 058
     Dates: start: 20240207
  2. GENOTROPIN [Suspect]
     Active Substance: SOMATROPIN
     Indication: Dwarfism

REACTIONS (1)
  - No adverse event [Recovered/Resolved]

NARRATIVE: CASE EVENT DATE: 20250201
